FAERS Safety Report 9905086 (Version 2)
Quarter: 2014Q1

REPORT INFORMATION
  Report Type: Spontaneous
  Country: US (occurrence: US)
  Receive Date: 20140218
  Receipt Date: 20140218
  Transmission Date: 20141002
  Serious: No
  Sender: FDA-Public Use
  Company Number: US-GILEAD-2012-0050822

PATIENT
  Age: 64 Year
  Sex: Female

DRUGS (3)
  1. LETAIRIS [Suspect]
     Indication: PULMONARY HYPERTENSION
     Dosage: 10 MG, UNK
     Route: 048
     Dates: start: 20110803
  2. LETAIRIS [Suspect]
     Dosage: 5 UNK, UNK
     Route: 048
  3. LEXAPRO [Concomitant]
     Dosage: UNK
     Dates: start: 20110311

REACTIONS (5)
  - Diarrhoea [Not Recovered/Not Resolved]
  - Depression [Unknown]
  - Hypersomnia [Unknown]
  - Fatigue [Not Recovered/Not Resolved]
  - Flushing [Not Recovered/Not Resolved]
